FAERS Safety Report 15426790 (Version 1)
Quarter: 2018Q3

REPORT INFORMATION
  Report Type: Spontaneous
  Country: SK (occurrence: SK)
  Receive Date: 20180925
  Receipt Date: 20180925
  Transmission Date: 20181010
  Serious: Yes (Other)
  Sender: FDA-Public Use
  Company Number: SK-ABBVIE-18P-260-2493055-00

PATIENT
  Age: 53 Year
  Sex: Female

DRUGS (8)
  1. MEDROL [Suspect]
     Active Substance: METHYLPREDNISOLONE
     Indication: PRODUCT USED FOR UNKNOWN INDICATION
     Dosage: 8 MILLIGRAM DAILY;
     Route: 065
  2. ACITRETIN. [Suspect]
     Active Substance: ACITRETIN
     Indication: PRODUCT USED FOR UNKNOWN INDICATION
     Route: 065
  3. ADALIMUMAB [Suspect]
     Active Substance: ADALIMUMAB
     Dosage: SECOND WEEK 80 MG
     Route: 058
  4. DAPSONE. [Suspect]
     Active Substance: DAPSONE
     Indication: PRODUCT USED FOR UNKNOWN INDICATION
     Dosage: 150 MG PER 6 DAYS IN A WEEK
     Route: 065
  5. CYCLOSPORINE. [Suspect]
     Active Substance: CYCLOSPORINE
     Indication: PRODUCT USED FOR UNKNOWN INDICATION
     Dosage: 100?0?125 MG DAILY
     Route: 065
  6. ADALIMUMAB [Suspect]
     Active Substance: ADALIMUMAB
     Indication: PRODUCT USED FOR UNKNOWN INDICATION
     Dosage: SINCE 29TH DAY 40 MG ONCE PER WEEK
     Route: 058
  7. CLINDAMYCIN. [Suspect]
     Active Substance: CLINDAMYCIN
     Indication: PRODUCT USED FOR UNKNOWN INDICATION
     Route: 051
  8. ADALIMUMAB [Suspect]
     Active Substance: ADALIMUMAB
     Dosage: FIRST DOSE 160 MG
     Route: 058

REACTIONS (7)
  - Lymphadenopathy [Unknown]
  - Pancreatic disorder [Unknown]
  - Renal cyst [Unknown]
  - Anaemia [Unknown]
  - Type IIb hyperlipidaemia [Unknown]
  - Mastitis [Unknown]
  - Dyspepsia [Unknown]
